FAERS Safety Report 9936985 (Version 1)
Quarter: 2014Q1

REPORT INFORMATION
  Report Type: Spontaneous
  Country: US (occurrence: None)
  Receive Date: 20140115
  Receipt Date: 20140115
  Transmission Date: 20141002
  Serious: No
  Sender: FDA-Public Use
  Company Number: 2013US002702

PATIENT
  Age: 52 Year
  Sex: Female

DRUGS (1)
  1. ICLUSIG (PONATINIB) TABLET, 45MG [Suspect]
     Indication: ACUTE LYMPHOCYTIC LEUKAEMIA (IN REMISSION)
     Route: 048
     Dates: start: 20130923, end: 2013

REACTIONS (8)
  - Eye swelling [None]
  - Auricular swelling [None]
  - Swelling face [None]
  - Abasia [None]
  - Hair texture abnormal [None]
  - Liver function test abnormal [None]
  - Arthralgia [None]
  - Headache [None]
